FAERS Safety Report 6464563-7 (Version None)
Quarter: 2009Q4

REPORT INFORMATION
  Report Type: 
  Country: None (occurrence: None)
  Receive Date: 20091201
  Receipt Date: 20091123
  Transmission Date: 20100525
  Serious: Yes (Life-Threatening, Hospitalization, Other)
  Sender: FDA-Public Use
  Company Number: US-PFIZER INC-2009301822

PATIENT
  Sex: Female
  Weight: 49.2 kg

DRUGS (18)
  1. EPIRUBICIN HCL [Suspect]
     Dosage: 50 MG/M2, EVERY 3 WEEKS
     Dates: start: 20090717
  2. OXALIPLATIN [Suspect]
     Dosage: 155 MG, EVERY 3 WEEKS
     Dates: start: 20090717
  3. CAPECITABINE [Suspect]
     Dosage: 650 MG, EVERY 3 WEEKS
     Dates: start: 20090717
  4. PANITUMUMAB [Suspect]
     Indication: OESOPHAGEAL CARCINOMA
     Dosage: 462 MG, EVERY 3 WEEKS
     Route: 042
     Dates: start: 20090717
  5. ACETAMINOPHEN [Concomitant]
     Dosage: UNK
     Dates: start: 20090708
  6. PROCHLORPERAZINE EDISYLATE [Concomitant]
     Dosage: UNK
     Dates: start: 20090707
  7. CALCIUM [Concomitant]
     Dosage: UNK
     Dates: start: 20090708
  8. DEXAMETHASONE [Concomitant]
     Dosage: UNK
     Dates: start: 20090717
  9. DOCUSATE [Concomitant]
     Dosage: UNK
     Dates: start: 20090708
  10. ETHAMBUTOL [Concomitant]
     Dosage: UNK
     Dates: start: 20090724
  11. IBUPROFEN [Concomitant]
     Dosage: UNK
     Dates: start: 20090708
  12. ISONIAZID [Concomitant]
     Dosage: UNK
     Dates: start: 20090724
  13. MAGNESIUM OXIDE [Concomitant]
     Dosage: UNK
     Dates: start: 20090708
  14. OMEPRAZOLE [Concomitant]
     Dosage: UNK
     Dates: start: 20090708
  15. OXYCODONE [Concomitant]
     Dosage: UNK
     Dates: start: 20090708
  16. PYRAZINAMIDE [Concomitant]
     Dosage: UNK
     Dates: start: 20090724
  17. PYRIDOXINE HYDROCHLORIDE [Concomitant]
     Dosage: UNK
     Dates: start: 20090724
  18. ONDANSETRON HYDROCHLORIDE [Concomitant]
     Dosage: UNK
     Dates: start: 20090717

REACTIONS (3)
  - CLOSTRIDIAL INFECTION [None]
  - COLITIS [None]
  - NEUTROPENIA [None]
